APPROVED DRUG PRODUCT: RIVAROXABAN
Active Ingredient: RIVAROXABAN
Strength: 20MG
Dosage Form/Route: TABLET;ORAL
Application: A208579 | Product #003 | TE Code: AB
Applicant: APOTEX INC
Approved: Nov 14, 2025 | RLD: No | RS: No | Type: RX